FAERS Safety Report 20678867 (Version 4)
Quarter: 2025Q1

REPORT INFORMATION
  Report Type: Report from Study
  Country: US (occurrence: US)
  Receive Date: 20220406
  Receipt Date: 20250226
  Transmission Date: 20250408
  Serious: Yes (Hospitalization)
  Sender: ROCHE
  Company Number: US-ROCHE-2936458

PATIENT
  Age: 58 Year
  Sex: Female
  Weight: 55.34 kg

DRUGS (7)
  1. OCREVUS [Suspect]
     Active Substance: OCRELIZUMAB
     Indication: Primary progressive multiple sclerosis
     Dosage: (PRESCRIBED AS INFUSE 300 MG ON DAY 1 AND 15 THEN 600 MG EVERY 6 MONTHS)?DATES OF TREATMENT: 04/FEB/
     Route: 042
     Dates: start: 20210121
  2. OCREVUS [Suspect]
     Active Substance: OCRELIZUMAB
     Indication: Relapsing-remitting multiple sclerosis
  3. OCREVUS [Suspect]
     Active Substance: OCRELIZUMAB
     Indication: Relapsing multiple sclerosis
  4. AMLODIPINE BESYLATE [Concomitant]
     Active Substance: AMLODIPINE BESYLATE
  5. METOPROLOL TARTRATE [Concomitant]
     Active Substance: METOPROLOL TARTRATE
  6. CYMBALTA [Concomitant]
     Active Substance: DULOXETINE HYDROCHLORIDE
     Indication: Neuralgia
  7. BACLOFEN [Concomitant]
     Active Substance: BACLOFEN
     Indication: Muscle spasticity

REACTIONS (17)
  - Malaise [Not Recovered/Not Resolved]
  - Therapeutic response shortened [Unknown]
  - Hypoaesthesia [Unknown]
  - Paraesthesia [Unknown]
  - Neck pain [Unknown]
  - Back pain [Unknown]
  - Weight increased [Unknown]
  - Gait spastic [Unknown]
  - Neuropathy peripheral [Unknown]
  - Herpes zoster [Unknown]
  - COVID-19 [Recovering/Resolving]
  - Off label use [Unknown]
  - Fatigue [Recovered/Resolved]
  - Muscular weakness [Unknown]
  - Asthenia [Not Recovered/Not Resolved]
  - Fall [Unknown]
  - Confusional state [Unknown]

NARRATIVE: CASE EVENT DATE: 20211012
